FAERS Safety Report 12374961 (Version 1)
Quarter: 2016Q2

REPORT INFORMATION
  Report Type: Spontaneous
  Country: US (occurrence: US)
  Receive Date: 20160517
  Receipt Date: 20160517
  Transmission Date: 20160815
  Serious: No
  Sender: FDA-Public Use
  Company Number: US-TEVA-654329ACC

PATIENT
  Sex: Female
  Weight: 77.18 kg

DRUGS (3)
  1. PLAN B ONE-STEP [Suspect]
     Active Substance: LEVONORGESTREL
     Indication: POST COITAL CONTRACEPTION
     Dates: start: 20160404, end: 20160404
  2. VITAMINS FOR WOMEN [Concomitant]
  3. VITAMINS [Concomitant]
     Active Substance: VITAMINS
     Indication: MUSCLE DISORDER

REACTIONS (3)
  - Fluid retention [Not Recovered/Not Resolved]
  - Vaginal haemorrhage [Not Recovered/Not Resolved]
  - Abdominal distension [Not Recovered/Not Resolved]
